FAERS Safety Report 4587677-5 (Version None)
Quarter: 2005Q1

REPORT INFORMATION
  Report Type: 
  Country: None (occurrence: None)
  Receive Date: 20050125
  Receipt Date: 20041209
  Transmission Date: 20050727
  Serious: No
  Sender: FDA-Public Use
  Company Number: USA040977624

PATIENT
  Age: 79 Year
  Sex: Female
  Weight: 68 kg

DRUGS (5)
  1. FORTEO [Suspect]
     Indication: BONE DISORDER
     Dosage: 20 UG/1 DAY
     Dates: start: 20040805, end: 20041106
  2. CARDIZEM [Concomitant]
  3. LESCOL [Concomitant]
  4. VITAMINS [Concomitant]
  5. CALCIUM GLUCONATE [Concomitant]

REACTIONS (6)
  - BLOOD GLUCOSE DECREASED [None]
  - CARDIAC FAILURE [None]
  - DIZZINESS [None]
  - EXTRASYSTOLES [None]
  - HEART RATE DECREASED [None]
  - HEART RATE INCREASED [None]
